FAERS Safety Report 17929056 (Version 1)
Quarter: 2020Q2

REPORT INFORMATION
  Report Type: Report from Study
  Country: None (occurrence: US)
  Receive Date: 20200623
  Receipt Date: 20200623
  Transmission Date: 20200714
  Serious: Yes (Hospitalization)
  Sender: FDA-Public Use
  Company Number: US-ABBVIE-20K-163-3449814-00

PATIENT
  Sex: Female

DRUGS (1)
  1. HUMIRA [Suspect]
     Active Substance: ADALIMUMAB
     Indication: PSORIASIS
     Route: 058

REACTIONS (5)
  - Asthenia [Recovering/Resolving]
  - Fatigue [Unknown]
  - Blood glucose decreased [Recovering/Resolving]
  - Vomiting [Recovering/Resolving]
  - Hallucination [Recovering/Resolving]
